FAERS Safety Report 6635919-4 (Version None)
Quarter: 2010Q1

REPORT INFORMATION
  Report Type: 
  Country: None (occurrence: None)
  Receive Date: 20100225
  Receipt Date: 20090728
  Transmission Date: 20100710
  Serious: Yes (Disabling, Other)
  Sender: FDA-Public Use
  Company Number: US-JNJFOC-20090709535

PATIENT
  Age: 26 Year
  Sex: Male

DRUGS (4)
  1. IBUPROFEN 400MG (IBUPROFEN) UNSPECIFIED [Suspect]
     Indication: DRUG USE FOR UNKNOWN INDICATION
     Dosage: 400 MG
  2. NEBCINE (TOBRAMYCIN SULFATE) [Suspect]
     Indication: DRUG USE FOR UNKNOWN INDICATION
     Dosage: DURATION OF THERAPY 6 DAYS
     Dates: start: 20090514
  3. AMBISOME [Suspect]
     Indication: ASPERGILLOSIS
     Dosage: DURATION OF THERAPY 13 DAYS
  4. NOXAFIL [Suspect]
     Indication: PSEUDOMONAS INFECTION
     Dosage: ORAL
     Route: 048
     Dates: start: 20090519

REACTIONS (1)
  - TINNITUS [None]
